FAERS Safety Report 15534045 (Version 1)
Quarter: 2018Q4

REPORT INFORMATION
  Report Type: Report from Study
  Country: IN (occurrence: IN)
  Receive Date: 20181021
  Receipt Date: 20181021
  Transmission Date: 20190205
  Serious: Yes (Hospitalization, Disabling, Other)
  Sender: FDA-Public Use
  Company Number: IN-TORRENT-00001902

PATIENT
  Age: 57 Year
  Sex: Female

DRUGS (2)
  1. MOXIFLOXACIN. [Suspect]
     Active Substance: MOXIFLOXACIN
     Indication: SUPERINFECTION
     Dosage: 400MG Q24H PO FOR 14 DAYS
     Route: 048
  2. CLINDAMYCIN. [Suspect]
     Active Substance: CLINDAMYCIN
     Indication: SUPERINFECTION
     Dosage: 600MG Q8H PO FOR 14 DAYS

REACTIONS (1)
  - Drug ineffective [Unknown]
